FAERS Safety Report 5525263-0 (Version None)
Quarter: 2007Q4

REPORT INFORMATION
  Report Type: 
  Country: None (occurrence: None)
  Receive Date: 20071126
  Receipt Date: 20071121
  Transmission Date: 20080405
  Serious: Yes (Hospitalization, Other)
  Sender: FDA-Public Use
  Company Number: GB-BRISTOL-MYERS SQUIBB COMPANY-13946405

PATIENT
  Age: 43 Year
  Sex: Male

DRUGS (6)
  1. CARBOPLATIN [Suspect]
     Indication: LEIOMYOSARCOMA
  2. HYDROXYCARBAMIDE [Suspect]
  3. DAUNORUBICIN [Suspect]
     Indication: LEIOMYOSARCOMA
  4. ALLOPURINOL [Suspect]
  5. RADIOTHERAPY [Suspect]
     Indication: LEIOMYOSARCOMA
  6. RASBURICASE [Suspect]

REACTIONS (3)
  - ACUTE MYELOID LEUKAEMIA [None]
  - RENAL FAILURE [None]
  - TUMOUR LYSIS SYNDROME [None]
